FAERS Safety Report 9507447 (Version 1)
Quarter: 2013Q3

REPORT INFORMATION
  Report Type: Report from Study
  Country: JP (occurrence: JP)
  Receive Date: 20130909
  Receipt Date: 20130909
  Transmission Date: 20140515
  Serious: Yes (Death, Other)
  Sender: FDA-Public Use
  Company Number: JP-GENZYME-THYM-1004084

PATIENT
  Age: 19 Year
  Sex: Male
  Weight: 66 kg

DRUGS (11)
  1. THYMOGLOBULIN [Suspect]
     Indication: BONE MARROW CONDITIONING REGIMEN
     Dosage: 165 MG, QD
     Route: 065
     Dates: start: 20110620, end: 20110620
  2. SAXIZON [Concomitant]
     Indication: PROPHYLAXIS
     Dosage: UNK
     Route: 065
     Dates: start: 20110621, end: 20110808
  3. PROGRAF [Concomitant]
     Indication: PROPHYLAXIS
     Dosage: UNK
     Route: 065
     Dates: start: 20110620, end: 20110805
  4. NEUTROGIN [Concomitant]
     Indication: ACUTE MYELOID LEUKAEMIA
     Dosage: UNK
     Route: 065
     Dates: start: 20110623, end: 20110718
  5. ITRIZOLE [Concomitant]
     Indication: PROPHYLAXIS
     Dosage: UNK
     Route: 065
     Dates: start: 20110620, end: 20110626
  6. MINERALIN [Concomitant]
     Indication: PRODUCT USED FOR UNKNOWN INDICATION
     Dosage: UNK
     Route: 065
     Dates: start: 20110712, end: 20110807
  7. SOL-MELCORT [Concomitant]
     Indication: PROPHYLAXIS AGAINST GRAFT VERSUS HOST DISEASE
     Dosage: UNK
     Route: 065
     Dates: start: 20110623, end: 20110712
  8. PREDONINE [Concomitant]
     Indication: PROPHYLAXIS AGAINST GRAFT VERSUS HOST DISEASE
     Dosage: UNK,
     Route: 065
     Dates: start: 20110629
  9. ACICLOVIR [Concomitant]
     Indication: PROPHYLAXIS
     Dosage: UNK
     Route: 065
     Dates: start: 20110627, end: 20110703
  10. BAKTAR [Concomitant]
     Indication: PROPHYLAXIS
     Dosage: UNK
     Route: 065
     Dates: start: 20110620, end: 20110703
  11. ZOSYN [Concomitant]
     Indication: ACUTE MYELOID LEUKAEMIA
     Dosage: UNK
     Route: 065
     Dates: start: 20110705, end: 20110713

REACTIONS (10)
  - Acute graft versus host disease in liver [Unknown]
  - Acute graft versus host disease in intestine [Unknown]
  - Pulmonary alveolar haemorrhage [Fatal]
  - Thrombotic microangiopathy [Not Recovered/Not Resolved]
  - Aspergillus test positive [Not Recovered/Not Resolved]
  - Epistaxis [Not Recovered/Not Resolved]
  - Pyrexia [Not Recovered/Not Resolved]
  - Staphylococcal sepsis [Recovered/Resolved]
  - Hepatitis viral [Recovered/Resolved]
  - Cellulitis [Not Recovered/Not Resolved]
